FAERS Safety Report 16153509 (Version 1)
Quarter: 2019Q2

REPORT INFORMATION
  Report Type: Spontaneous
  Country: AT (occurrence: SG)
  Receive Date: 20190403
  Receipt Date: 20190403
  Transmission Date: 20190711
  Serious: Yes (Death, Hospitalization, Other)
  Sender: FDA-Public Use
  Company Number: AT-BAYER-2019-059595

PATIENT
  Age: 66 Year
  Sex: Male
  Weight: 95 kg

DRUGS (4)
  1. NEXAVAR [Suspect]
     Active Substance: SORAFENIB
     Indication: HEPATOCELLULAR CARCINOMA
     Dosage: 600 MG DAILY
     Dates: start: 201604, end: 20161016
  2. STIVARGA [Suspect]
     Active Substance: REGORAFENIB
     Indication: HEPATOCELLULAR CARCINOMA
     Dosage: 160 MG WEEKS ON / 1 WEEK OFF
     Dates: start: 20161109, end: 20170501
  3. TACE [CHLOROTRIANISENE] [Concomitant]
  4. NEXAVAR [Suspect]
     Active Substance: SORAFENIB
     Indication: HEPATOCELLULAR CARCINOMA
     Dosage: 800 MG DAILY
     Dates: start: 20160329, end: 201604

REACTIONS (12)
  - Hypertension [Not Recovered/Not Resolved]
  - Cerebral haemorrhage [None]
  - Metastases to spine [None]
  - Diarrhoea [Not Recovered/Not Resolved]
  - Abdominal pain upper [None]
  - Depression [Not Recovered/Not Resolved]
  - Abdominal distension [None]
  - Seizure [None]
  - Hepatocellular carcinoma [None]
  - Diarrhoea [Not Recovered/Not Resolved]
  - Fatigue [Not Recovered/Not Resolved]
  - Apathy [None]

NARRATIVE: CASE EVENT DATE: 2016
